FAERS Safety Report 22281911 (Version 1)
Quarter: 2023Q2

REPORT INFORMATION
  Report Type: Spontaneous
  Country: FR (occurrence: FR)
  Receive Date: 20230504
  Receipt Date: 20230504
  Transmission Date: 20230722
  Serious: Yes (Hospitalization, Other)
  Sender: FDA-Public Use
  Company Number: FR-ALKEM LABORATORIES LIMITED-FR-ALKEM-2023-04636

PATIENT
  Age: 48 Year
  Sex: Male

DRUGS (4)
  1. DALFAMPRIDINE [Interacting]
     Active Substance: DALFAMPRIDINE
     Indication: Relapsing-remitting multiple sclerosis
     Dosage: UNK, BID
     Route: 065
  2. DALFAMPRIDINE [Interacting]
     Active Substance: DALFAMPRIDINE
     Indication: Secondary progressive multiple sclerosis
  3. BACLOFEN [Interacting]
     Active Substance: BACLOFEN
     Indication: Relapsing-remitting multiple sclerosis
     Dosage: 20 MILLIGRAM, TID
     Route: 065
  4. BACLOFEN [Interacting]
     Active Substance: BACLOFEN
     Indication: Secondary progressive multiple sclerosis

REACTIONS (2)
  - Status epilepticus [Recovering/Resolving]
  - Drug interaction [Unknown]
